FAERS Safety Report 9229954 (Version 1)
Quarter: 2013Q2

REPORT INFORMATION
  Report Type: Spontaneous
  Country: US (occurrence: None)
  Receive Date: 20130411
  Receipt Date: 20130411
  Transmission Date: 20140414
  Serious: Yes (Hospitalization)
  Sender: FDA-Public Use
  Company Number: CLCY20130068

PATIENT
  Age: 54 Year
  Sex: Male
  Weight: 108.86 kg

DRUGS (4)
  1. COLCRYS 0.6 MG [Suspect]
     Indication: GOUT
     Dosage: 0.6 MG, AS NEEDED FOR GOUT FLARE, ORAL
     Route: 048
  2. PREDNISONE [Suspect]
     Indication: GOUT
     Dates: start: 2012, end: 2013
  3. HYDROCODONE [Concomitant]
  4. ULORIC (FEBUXOSTAT) [Concomitant]

REACTIONS (2)
  - Hiatus hernia [None]
  - Hiccups [None]
